FAERS Safety Report 8947771 (Version 2)
Quarter: 2012Q4

REPORT INFORMATION
  Report Type: Spontaneous
  Country: US (occurrence: None)
  Receive Date: 20120814
  Receipt Date: 20120910
  Transmission Date: 20130627
  Serious: Yes (Hospitalization)
  Sender: FDA-Public Use
  Company Number: UTC-020765

PATIENT
  Age: 67 Year
  Sex: Female
  Weight: 81.8 kg

DRUGS (5)
  1. TYVASO (6 MICROGRAM, AEROSOL FOR INHALATION) (TREPROSTINIL SODIUM) [Suspect]
     Indication: PRIMARY PULMONARY HYPERTENSION
     Dosage: (54 ug,4 in 1 d)
     Route: 055
     Dates: start: 20120424
  2. TYVASO (6 MICROGRAM, AEROSOL FOR INHALATION) (TREPROSTINIL SODIUM) [Suspect]
     Indication: PRIMARY PULMONARY HYPERTENSION
  3. COUMADIN [Suspect]
  4. ADCIRCA (TADALAFIL) [Concomitant]
  5. LETAIRIS [Suspect]
     Indication: IDIOPATHIC PULMONARY ARTERIAL HYPERTENSION
     Route: 048
     Dates: start: 20111010

REACTIONS (2)
  - Anaemia [None]
  - Gastrointestinal haemorrhage [None]
